FAERS Safety Report 6330208-X (Version None)
Quarter: 2009Q3

REPORT INFORMATION
  Report Type: 
  Country: None (occurrence: None)
  Receive Date: 20090827
  Receipt Date: 20090615
  Transmission Date: 20100115
  Serious: No
  Sender: FDA-Public Use
  Company Number: A0793144A

PATIENT
  Sex: Female

DRUGS (2)
  1. LAMICTAL [Suspect]
     Indication: FIBROMYALGIA
     Route: 065
  2. LYRICA [Suspect]
     Indication: FIBROMYALGIA
     Route: 065

REACTIONS (1)
  - HYPERSENSITIVITY [None]
